FAERS Safety Report 23814175 (Version 1)
Quarter: 2024Q2

REPORT INFORMATION
  Report Type: Spontaneous
  Country: FR (occurrence: FR)
  Receive Date: 20240503
  Receipt Date: 20240503
  Transmission Date: 20240716
  Serious: Yes (Other)
  Sender: FDA-Public Use
  Company Number: None

PATIENT
  Age: 3 Year
  Sex: Female
  Weight: 12.3 kg

DRUGS (33)
  1. HEPARIN [Suspect]
     Active Substance: HEPARIN SODIUM
     Indication: Anticoagulant therapy
     Dosage: 4 UI/KG/H?DAILY DOSE: 96 IU/KG
     Route: 042
     Dates: start: 20240324, end: 202404
  2. VALGANCICLOVIR [Suspect]
     Active Substance: VALGANCICLOVIR
     Indication: Antibiotic prophylaxis
     Dosage: NR. DOSAGE FORM: POWDER FOR DRINKABLE SOLUTION
     Route: 042
     Dates: start: 20240322, end: 202404
  3. BACTRIM [Suspect]
     Active Substance: SULFAMETHOXAZOLE\TRIMETHOPRIM
     Indication: Antibiotic prophylaxis
     Dosage: NR
     Route: 042
     Dates: start: 20240322, end: 202404
  4. DEXMEDETOMIDINE HYDROCHLORIDE [Suspect]
     Active Substance: DEXMEDETOMIDINE HYDROCHLORIDE
     Indication: Sedation
     Dosage: 1UG/KG/H?DAILY DOSE: 33.6 MICROGRAM/KG
     Route: 042
     Dates: start: 20240318, end: 20240401
  5. DEXMEDETOMIDINE HYDROCHLORIDE [Suspect]
     Active Substance: DEXMEDETOMIDINE HYDROCHLORIDE
     Indication: Sedation
     Dosage: INCREASE IN DEXMEDETOMIDINE
     Route: 042
     Dates: start: 20240324
  6. DEXMEDETOMIDINE HYDROCHLORIDE [Suspect]
     Active Substance: DEXMEDETOMIDINE HYDROCHLORIDE
     Indication: Sedation
     Dosage: DEXMEDETOMIDINE STOPPED
     Route: 042
     Dates: end: 20240401
  7. FUROSEMIDE [Suspect]
     Active Substance: FUROSEMIDE
     Indication: Diuretic therapy
     Dosage: 2MG/KG/24H?DAILY DOSE: 2 MILLIGRAM/KG
     Route: 042
     Dates: start: 20240325, end: 202404
  8. KETAMINE [Suspect]
     Active Substance: KETAMINE
     Indication: Sedation
     Dosage: 1MG/KG/24H?DAILY DOSE: 1 MILLIGRAM/KG
     Route: 042
     Dates: start: 20240322, end: 20240402
  9. KETAMINE [Suspect]
     Active Substance: KETAMINE
     Indication: Sedation
     Dosage: INCREASE IN KETAMINE
     Route: 042
     Dates: start: 20240324
  10. KETAMINE [Suspect]
     Active Substance: KETAMINE
     Indication: Sedation
     Dosage: KETAMINE DECREASED
     Route: 042
     Dates: start: 20240331
  11. KETAMINE [Suspect]
     Active Substance: KETAMINE
     Indication: Sedation
     Dosage: KETAMINE STOPPED
     Route: 042
     Dates: end: 20240402
  12. ALFACALCIDOL [Concomitant]
     Active Substance: ALFACALCIDOL
     Dosage: (DOSAGE NR)
  13. PREDNISONE [Concomitant]
     Active Substance: PREDNISONE
     Dosage: CORTANCYL 1MG/KG/D OVER 3 DAYS ?DAILY DOSE: 1 MILLIGRAM/KG
     Dates: start: 20240228
  14. TACROLIMUS [Concomitant]
     Active Substance: TACROLIMUS
     Dosage: (DOSAGE NR)
  15. Ursofalt [Concomitant]
     Dosage: (DOSAGE NR)
  16. Bicarbonate of soda [Concomitant]
     Dosage: (DOSAGE NR)
  17. AMLODIPINE [Concomitant]
     Active Substance: AMLODIPINE BESYLATE
     Dosage: (DOSAGE NR)
  18. ALBUTEROL [Concomitant]
     Active Substance: ALBUTEROL
     Indication: Asthma
     Dosage: 5 PUFFS 4 TIMES A DAY
  19. ALBUTEROL [Concomitant]
     Active Substance: ALBUTEROL
     Indication: Tachycardia
     Dosage: 5 PUFFS 4 TIMES A DAY
  20. ALBUTEROL [Concomitant]
     Active Substance: ALBUTEROL
     Indication: Asthma
     Dosage: NIGHT BETWEEN 01 AND 02/03/2024: CONTINUOUS AEROSOL THERAPY WITH SALBUTAMOL
  21. ALBUTEROL [Concomitant]
     Active Substance: ALBUTEROL
     Indication: Tachycardia
     Dosage: NIGHT BETWEEN 01 AND 02/03/2024: CONTINUOUS AEROSOL THERAPY WITH SALBUTAMOL
  22. ESOMEPRAZOLE [Concomitant]
     Active Substance: ESOMEPRAZOLE
     Dosage: INEXIUM INCREASED TO 2MG/KG/D?DAILY DOSE: 2 MILLIGRAM/KG
     Dates: start: 20240312
  23. ESOMEPRAZOLE [Concomitant]
     Active Substance: ESOMEPRAZOLE
  24. SECTRAL [Concomitant]
     Active Substance: ACEBUTOLOL HYDROCHLORIDE
     Indication: Asthma
     Dosage: 80MG/12H (STILL COMBINED WITH USUAL AMLODIPIDINE TREATMENT).?DAILY DOSE: 160 MILLIGRAM
     Dates: start: 20240314
  25. SECTRAL [Concomitant]
     Active Substance: ACEBUTOLOL HYDROCHLORIDE
     Indication: Asthma
     Dosage: 100MH/12H INCREASED?DAILY DOSE: 200 MILLIGRAM
     Dates: start: 20240316
  26. TACROLIMUS [Concomitant]
     Active Substance: TACROLIMUS
     Dosage: TACROLIMUS REDUCED.
     Dates: start: 20240329
  27. TACROLIMUS [Concomitant]
     Active Substance: TACROLIMUS
     Dosage: TACROLIMUS INCREASED
     Dates: start: 20240331
  28. TACROLIMUS [Concomitant]
     Active Substance: TACROLIMUS
     Dosage: TACROLIMUS DOSE ADJUSTED TO 3MG/12H ?DAILY DOSE: 6 MILLIGRAM
  29. FUROSEMIDE [Concomitant]
     Active Substance: FUROSEMIDE
     Indication: Oedema
     Dosage: LASILIX 5MH/12H?DAILY DOSE: 10 MILLIGRAM
     Dates: start: 20240320
  30. FUROSEMIDE [Concomitant]
     Active Substance: FUROSEMIDE
     Indication: Oedema
     Dosage: INCREASE IN LASILIX 3 TIMES 15MG.
     Dates: start: 20240328
  31. FUROSEMIDE [Concomitant]
     Active Substance: FUROSEMIDE
     Indication: Oedema
     Dosage: INCREASE IN LASILIX
     Dates: start: 20240330
  32. PROPOFOL [Concomitant]
     Active Substance: PROPOFOL
     Indication: Sedation
     Dosage: DISCONTINUATION OF PROPOFOL.
     Dates: start: 20240322, end: 20240324
  33. RITUXIMAB [Concomitant]
     Active Substance: RITUXIMAB
     Dosage: RITUXIMAB UNTIL 29/03/2024
     Dates: end: 20240329

REACTIONS (2)
  - Cholestasis [Unknown]
  - Off label use [Unknown]

NARRATIVE: CASE EVENT DATE: 20240326
